FAERS Safety Report 18137818 (Version 1)
Quarter: 2020Q3

REPORT INFORMATION
  Report Type: Spontaneous
  Country: US (occurrence: US)
  Receive Date: 20200812
  Receipt Date: 20200812
  Transmission Date: 20201103
  Serious: No
  Sender: FDA-Public Use
  Company Number: US-BAUSCH-BL-2020-022213

PATIENT
  Age: 81 Year
  Sex: Female

DRUGS (1)
  1. LOTEPREDNOL ETABONATE OPHTHALMIC SUSPENSION 0.5% [Suspect]
     Active Substance: LOTEPREDNOL ETABONATE
     Indication: CONJUNCTIVITIS
     Dosage: 1 DROP IN EACH EYE?NDC : 68682?299?05
     Route: 047
     Dates: start: 20200731, end: 20200801

REACTIONS (2)
  - Eye pruritus [Not Recovered/Not Resolved]
  - Eye swelling [Recovering/Resolving]

NARRATIVE: CASE EVENT DATE: 2020
